FAERS Safety Report 9745528 (Version 1)
Quarter: 2013Q4

REPORT INFORMATION
  Report Type: Report from Study
  Country: KR (occurrence: KR)
  Receive Date: 20131211
  Receipt Date: 20131211
  Transmission Date: 20140711
  Serious: Yes (Hospitalization)
  Sender: FDA-Public Use
  Company Number: KR-SA-2013SA125849

PATIENT
  Age: 61 Year
  Sex: Male
  Weight: 59 kg

DRUGS (2)
  1. LANTUS [Suspect]
     Indication: DIABETES MELLITUS
     Dosage: DOSE:16 UNIT(S)
     Route: 058
     Dates: start: 20131113
  2. HUMALOG [Suspect]
     Indication: DIABETES MELLITUS
     Dosage: DOSE: 6-6-6 UNIT
     Route: 058

REACTIONS (1)
  - Herpes zoster [Recovered/Resolved]
